FAERS Safety Report 4674449-6 (Version None)
Quarter: 2005Q2

REPORT INFORMATION
  Report Type: 
  Country: None (occurrence: None)
  Receive Date: 20050526
  Receipt Date: 20050331
  Transmission Date: 20051028
  Serious: Yes (Hospitalization, Other)
  Sender: FDA-Public Use
  Company Number: PHNU2005DE01494

PATIENT
  Sex: Female

DRUGS (3)
  1. ZOMETA [Suspect]
     Indication: METASTASES TO BONE
     Dosage: 4 MG, QMO
     Route: 042
     Dates: start: 20020301
  2. INTERFERON ALFA [Concomitant]
     Indication: RENAL CELL CARCINOMA STAGE UNSPECIFIED
     Dosage: 4.5 MIU, QD
     Route: 065
     Dates: start: 20020301
  3. RADIOTHERAPY [Concomitant]
     Route: 065
     Dates: start: 20020101

REACTIONS (2)
  - DENTAL TREATMENT [None]
  - OSTEOMYELITIS [None]
